FAERS Safety Report 5031246-X (Version None)
Quarter: 2006Q2

REPORT INFORMATION
  Report Type: 
  Country: None (occurrence: None)
  Receive Date: 20060619
  Receipt Date: 20060619
  Transmission Date: 20061013
  Serious: Yes (Hospitalization)
  Sender: FDA-Public Use
  Company Number: None

PATIENT
  Sex: Female
  Weight: 103 kg

DRUGS (9)
  1. NOLVADEX [Suspect]
     Dosage: 10 MG
  2. ACTOSE [Concomitant]
  3. AMARYL [Concomitant]
  4. COUMADIN [Concomitant]
  5. DEPAKOTE [Concomitant]
  6. DETROL [Concomitant]
  7. INSULIN [Concomitant]
  8. NEURONTIN [Concomitant]
  9. SYNTHROID [Concomitant]

REACTIONS (4)
  - DYSPHAGIA [None]
  - FALL [None]
  - SUBDURAL HAEMATOMA [None]
  - SYNCOPE [None]
